FAERS Safety Report 13346438 (Version 1)
Quarter: 2017Q1

REPORT INFORMATION
  Report Type: Spontaneous
  Country: US (occurrence: US)
  Receive Date: 20170317
  Receipt Date: 20170317
  Transmission Date: 20170428
  Serious: Yes (Hospitalization)
  Sender: FDA-Public Use
  Company Number: None

PATIENT
  Sex: Male
  Weight: 65.5 kg

DRUGS (5)
  1. DOXORUBICIN HYDROCHLORIDE. [Suspect]
     Active Substance: DOXORUBICIN HYDROCHLORIDE
     Dates: end: 20170215
  2. DEXAMETHASONE. [Suspect]
     Active Substance: DEXAMETHASONE
     Dates: end: 20170222
  3. METHOTREXATE. [Suspect]
     Active Substance: METHOTREXATE
     Dates: end: 20170201
  4. VINCRISTINE SULFATE. [Suspect]
     Active Substance: VINCRISTINE SULFATE
     Dates: end: 20170215
  5. ONCASPAR [Suspect]
     Active Substance: PEGASPARGASE
     Dates: end: 20170203

REACTIONS (13)
  - Gastrointestinal necrosis [None]
  - Thrombocytopenia [None]
  - Perineal erythema [None]
  - Mucosal inflammation [None]
  - Tachycardia [None]
  - Soft tissue infection [None]
  - Neutropenia [None]
  - Perineal pain [None]
  - Swelling [None]
  - Scrotal oedema [None]
  - Anaemia [None]
  - Escherichia bacteraemia [None]
  - Generalised oedema [None]

NARRATIVE: CASE EVENT DATE: 20170222
